FAERS Safety Report 19511323 (Version 1)
Quarter: 2021Q3

REPORT INFORMATION
  Report Type: Spontaneous
  Country: DZ (occurrence: DZ)
  Receive Date: 20210709
  Receipt Date: 20210709
  Transmission Date: 20211014
  Serious: Yes (Other)
  Sender: FDA-Public Use
  Company Number: DZ-ROCHE-2865566

PATIENT
  Age: 67 Year

DRUGS (5)
  1. BEVACIZUMAB. [Suspect]
     Active Substance: BEVACIZUMAB
     Indication: PRODUCT USED FOR UNKNOWN INDICATION
     Route: 065
  2. FOLFIRI BEVACIZUMAB [LEUCOVORIN CALCIUM] [Suspect]
     Active Substance: LEUCOVORIN CALCIUM
  3. FOLFIRI BEVACIZUMAB [BEVACIZUMAB] [Suspect]
     Active Substance: BEVACIZUMAB
     Indication: PRODUCT USED FOR UNKNOWN INDICATION
     Route: 065
  4. FOLFIRI BEVACIZUMAB [IRINOTECAN HYDROCHLORIDE] [Suspect]
     Active Substance: IRINOTECAN HYDROCHLORIDE
  5. FOLFIRI BEVACIZUMAB [FLUOROURACIL] [Suspect]
     Active Substance: FLUOROURACIL

REACTIONS (5)
  - Lung neoplasm [Unknown]
  - Peritoneal cyst [Unknown]
  - Proteinuria [Unknown]
  - Hepatic cyst [Unknown]
  - Hypertension [Unknown]
